FAERS Safety Report 25780689 (Version 3)
Quarter: 2025Q4

REPORT INFORMATION
  Report Type: Spontaneous
  Country: US (occurrence: US)
  Receive Date: 20250909
  Receipt Date: 20251203
  Transmission Date: 20260117
  Serious: Yes (Other)
  Sender: BAYER HEALTHCARE PHARMACEUTICALS INC.
  Company Number: US-BAYER-2025A118635

PATIENT
  Age: 35 Year
  Sex: Male

DRUGS (5)
  1. JIVI [Suspect]
     Active Substance: DAMOCTOCOG ALFA PEGOL
     Indication: Factor VIII deficiency
     Dosage: JIVI 2000 IU: INFUSE~(4896-5984) UNIT SLOW IV PUSH EVERY 3 DAYS
     Route: 042
     Dates: start: 202507
  2. JIVI [Suspect]
     Active Substance: DAMOCTOCOG ALFA PEGOL
     Indication: Prophylaxis
     Dosage: JIVI 1000 IU: INFUSE~(4896-5984) UNIT SLOW IV PUSH EVERY 3 DAYS
     Route: 042
     Dates: start: 202508
  3. JIVI [Suspect]
     Active Substance: DAMOCTOCOG ALFA PEGOL
     Indication: Factor VIII deficiency
     Dosage: 3000 U, Q72HR
     Route: 042
     Dates: start: 202508
  4. JIVI [Suspect]
     Active Substance: DAMOCTOCOG ALFA PEGOL
     Indication: Factor VIII deficiency
     Dosage: 2 DOSES TO TREAT RIGHT ANKLE BLEED
     Route: 042
     Dates: start: 20250829, end: 20250829
  5. JIVI [Suspect]
     Active Substance: DAMOCTOCOG ALFA PEGOL
     Indication: Factor VIII deficiency
     Dosage: 1 DOSE FOR FOREARM AND 2 DOSES TO TREAT HAND BLEED
     Route: 042

REACTIONS (5)
  - Haemarthrosis [Not Recovered/Not Resolved]
  - Haemorrhage [None]
  - Haemorrhage [None]
  - Haemorrhage [None]
  - Haemorrhage [None]

NARRATIVE: CASE EVENT DATE: 20250829
